FAERS Safety Report 16150229 (Version 10)
Quarter: 2021Q1

REPORT INFORMATION
  Report Type: Spontaneous
  Country: US (occurrence: US)
  Receive Date: 20190402
  Receipt Date: 20210322
  Transmission Date: 20210419
  Serious: Yes (Hospitalization, Other)
  Sender: FDA-Public Use
  Company Number: US-TAKEDA-2019TUS011103

PATIENT
  Sex: Female
  Weight: 76 kg

DRUGS (1)
  1. NINLARO [Suspect]
     Active Substance: IXAZOMIB CITRATE
     Indication: PLASMA CELL MYELOMA
     Dosage: 3 MILLIGRAM
     Route: 048
     Dates: start: 20190218

REACTIONS (18)
  - Influenza [Unknown]
  - Vomiting [Recovered/Resolved]
  - COVID-19 [Recovering/Resolving]
  - Glycosylated haemoglobin decreased [Unknown]
  - Macular oedema [Recovering/Resolving]
  - Eye haemorrhage [Unknown]
  - Feeding disorder [Unknown]
  - Nausea [Recovered/Resolved]
  - Product physical issue [Unknown]
  - Cough [Unknown]
  - Pyrexia [Unknown]
  - Fatigue [Recovered/Resolved]
  - Nasopharyngitis [Unknown]
  - Blood glucose increased [Unknown]
  - Muscular weakness [Unknown]
  - Asthenia [Unknown]
  - Rash macular [Unknown]
  - Accidental exposure to product [Unknown]
